FAERS Safety Report 8237563-4 (Version None)
Quarter: 2012Q1

REPORT INFORMATION
  Report Type: 
  Country: None (occurrence: None)
  Receive Date: 20120327
  Receipt Date: 20120315
  Transmission Date: 20120608
  Serious: Yes (Hospitalization)
  Sender: FDA-Public Use
  Company Number: JP-UCBSA-053638

PATIENT
  Age: 86 Year
  Sex: Male

DRUGS (2)
  1. XYZAL [Suspect]
     Route: 048
     Dates: start: 20120101, end: 20120301
  2. ALLEGRA [Concomitant]
     Dates: end: 20120101

REACTIONS (1)
  - ATRIAL FIBRILLATION [None]
